FAERS Safety Report 9442627 (Version 5)
Quarter: 2014Q3

REPORT INFORMATION
  Report Type: Spontaneous
  Country: FR (occurrence: FR)
  Receive Date: 20130806
  Receipt Date: 20140730
  Transmission Date: 20150326
  Serious: Yes (Hospitalization, Disabling, Other)
  Sender: FDA-Public Use
  Company Number: FR-PFIZER INC-2013224660

PATIENT
  Age: 51 Year
  Sex: Female
  Weight: 80 kg

DRUGS (8)
  1. INEXIUM /01479302/ [Concomitant]
     Active Substance: ESOMEPRAZOLE MAGNESIUM
     Indication: HIATUS HERNIA
     Dosage: UNK
  2. EFFERALGAN [Concomitant]
     Active Substance: ACETAMINOPHEN
     Indication: BACK PAIN
     Dosage: 1 G, 2X/DAY
  3. DOLIPRANE [Concomitant]
     Active Substance: ACETAMINOPHEN
     Indication: BACK PAIN
     Dosage: UNK
  4. SOLU-MEDROL [Suspect]
     Active Substance: METHYLPREDNISOLONE SODIUM SUCCINATE
     Indication: BACK PAIN
     Dosage: 40 MG, 1X/DAY, FOR 3 DAYS
     Route: 030
     Dates: start: 201111
  5. SPASFON [Concomitant]
     Active Substance: PHLOROGLUCINOL
     Dosage: 1 DF, 3X/DAY
  6. KERLONE [Concomitant]
     Active Substance: BETAXOLOL HYDROCHLORIDE
     Dosage: UNK
  7. OMEPRAZOLE. [Concomitant]
     Active Substance: OMEPRAZOLE
     Dosage: 20 MG, 1X/DAY
  8. GAVISCON [Concomitant]
     Active Substance: ALUMINUM HYDROXIDE\MAGNESIUM CARBONATE
     Dosage: UNK

REACTIONS (2)
  - Type 2 diabetes mellitus [Not Recovered/Not Resolved]
  - Emotional disorder [Not Recovered/Not Resolved]

NARRATIVE: CASE EVENT DATE: 2011
